FAERS Safety Report 9463173 (Version 1)
Quarter: 2013Q3

REPORT INFORMATION
  Report Type: Spontaneous
  Country: CN (occurrence: CN)
  Receive Date: 20130817
  Receipt Date: 20130817
  Transmission Date: 20140515
  Serious: Yes (Hospitalization, Other)
  Sender: FDA-Public Use
  Company Number: CN-JNJFOC-20130802170

PATIENT
  Age: 24 Month
  Sex: Male
  Weight: 22 kg

DRUGS (1)
  1. MOTRIN [Suspect]
     Indication: PYREXIA
     Dosage: 4 ML ONCE AT THE NIGHT OF 2-AUG-2013
     Route: 048
     Dates: start: 20130802, end: 20130803

REACTIONS (1)
  - Accidental exposure to product by child [Recovered/Resolved]
